FAERS Safety Report 5946382-0 (Version None)
Quarter: 2008Q4

REPORT INFORMATION
  Report Type: 
  Country: None (occurrence: None)
  Receive Date: 20081106
  Receipt Date: 20081029
  Transmission Date: 20090506
  Serious: No
  Sender: FDA-Public Use
  Company Number: 2008AL011484

PATIENT
  Age: 13 Year
  Sex: Male

DRUGS (1)
  1. HYDROCORTISONE 1%-P CREAM [Suspect]
     Indication: DERMATITIS ATOPIC
     Dosage: 1 PCT;TOP
     Route: 061

REACTIONS (5)
  - CATARACT [None]
  - ENDOPHTHALMITIS [None]
  - EYE INFECTION STAPHYLOCOCCAL [None]
  - VISION BLURRED [None]
  - VISUAL ACUITY REDUCED [None]
